FAERS Safety Report 8964497 (Version 2)
Quarter: 2013Q1

REPORT INFORMATION
  Report Type: Report from Study
  Country: US (occurrence: US)
  Receive Date: 20121213
  Receipt Date: 20130201
  Transmission Date: 20140127
  Serious: Yes (Hospitalization)
  Sender: FDA-Public Use
  Company Number: US-ROCHE-1166354

PATIENT
  Age: 78 Year
  Sex: Female

DRUGS (1)
  1. XELODA [Suspect]
     Indication: NEOPLASM MALIGNANT
     Route: 065
     Dates: start: 2008

REACTIONS (4)
  - Adverse drug reaction [Unknown]
  - Blister [Unknown]
  - Stomatitis [Unknown]
  - Rash [Unknown]
